FAERS Safety Report 7703791 (Version 5)
Quarter: 2013Q3

REPORT INFORMATION
  Report Type: Spontaneous
  Country: DK (occurrence: DK)
  Receive Date: 20101210
  Receipt Date: 20130710
  Transmission Date: 20140515
  Serious: Yes (Disabling, Other)
  Sender: FDA-Public Use
  Company Number: DK-AMGEN-DNKSP2010007885

PATIENT
  Age: 59 Year
  Sex: Female

DRUGS (4)
  1. ENBREL [Suspect]
     Indication: PSORIASIS
     Dosage: UNK MG, UNK
     Route: 065
     Dates: start: 20050901, end: 20070129
  2. ENBREL [Suspect]
     Dosage: 50 MG, 2X/WEEK
     Route: 065
     Dates: start: 20080610, end: 20080811
  3. ENBREL [Suspect]
     Dosage: 75 MG, WEEKLY
     Route: 065
     Dates: start: 20080812, end: 20090421
  4. ENBREL [Suspect]
     Dosage: 50 MG, WEEKLY
     Route: 065
     Dates: start: 20090422, end: 20100510

REACTIONS (13)
  - Central nervous system lesion [Not Recovered/Not Resolved]
  - Fatigue [Not Recovered/Not Resolved]
  - Dizziness [Not Recovered/Not Resolved]
  - Disturbance in attention [Not Recovered/Not Resolved]
  - Gait disturbance [Not Recovered/Not Resolved]
  - Tremor [Not Recovered/Not Resolved]
  - Vitamin B12 deficiency [Unknown]
  - Folate deficiency [Unknown]
  - Hypercalcaemia [Unknown]
  - Coordination abnormal [Not Recovered/Not Resolved]
  - Ataxia [Not Recovered/Not Resolved]
  - Paraesthesia [Unknown]
  - Demyelination [Unknown]
